FAERS Safety Report 17798935 (Version 1)
Quarter: 2020Q2

REPORT INFORMATION
  Report Type: Spontaneous
  Country: AR (occurrence: AR)
  Receive Date: 20200518
  Receipt Date: 20200518
  Transmission Date: 20200714
  Serious: Yes (Other)
  Sender: FDA-Public Use
  Company Number: AR-PFIZER INC-2020193462

PATIENT
  Age: 57 Year
  Sex: Female

DRUGS (2)
  1. ARTRAIT [METHOTREXATE SODIUM] [Concomitant]
     Dosage: UNK
  2. XELJANZ [Suspect]
     Active Substance: TOFACITINIB CITRATE
     Indication: RHEUMATOID ARTHRITIS
     Dosage: 5 MG, 2X/DAY
     Dates: start: 20190801

REACTIONS (3)
  - American trypanosomiasis [Unknown]
  - Hypertension [Unknown]
  - Cardiac disorder [Unknown]
